FAERS Safety Report 25025322 (Version 1)
Quarter: 2025Q1

REPORT INFORMATION
  Report Type: Spontaneous
  Country: CN (occurrence: CN)
  Receive Date: 20250228
  Receipt Date: 20250228
  Transmission Date: 20250409
  Serious: Yes (Other)
  Sender: PFIZER
  Company Number: CN-PFIZER INC-PV202500024594

PATIENT
  Age: 9 Year
  Sex: Male
  Weight: 27.5 kg

DRUGS (2)
  1. METHYLPREDNISOLONE SODIUM SUCCINATE [Suspect]
     Active Substance: METHYLPREDNISOLONE SODIUM SUCCINATE
     Indication: Henoch-Schonlein purpura
     Dosage: 30 MG, 2X/DAY
     Route: 041
     Dates: start: 20250211, end: 20250211
  2. SODIUM CHLORIDE [Concomitant]
     Active Substance: SODIUM CHLORIDE
     Indication: Henoch-Schonlein purpura
     Dosage: 50 ML, 2X/DAY
     Route: 041
     Dates: start: 20250211, end: 20250211

REACTIONS (2)
  - Vomiting [Recovering/Resolving]
  - Off label use [Unknown]

NARRATIVE: CASE EVENT DATE: 20250211
